FAERS Safety Report 11130610 (Version 1)
Quarter: 2015Q2

REPORT INFORMATION
  Report Type: Spontaneous
  Country: US (occurrence: None)
  Receive Date: 20150520
  Receipt Date: 20150520
  Transmission Date: 20150821
  Serious: Yes (Hospitalization)
  Sender: FDA-Public Use
  Company Number: UCM201505-000356

PATIENT
  Age: 39 Year
  Sex: Male

DRUGS (3)
  1. QUETIAPINE (QUETIAPINE) (QUETIAPINE) [Suspect]
     Active Substance: QUETIAPINE
     Indication: BIPOLAR I DISORDER
     Dosage: 150 MG NIGHTLY
  2. DIVALPROEX SODIUM. [Suspect]
     Active Substance: DIVALPROEX SODIUM
     Indication: BIPOLAR I DISORDER
     Dosage: 2W500 MG NIGHTLY
  3. LORAZEPAM. [Concomitant]
     Active Substance: LORAZEPAM

REACTIONS (15)
  - Hyperglycaemia [None]
  - Diabetes mellitus [None]
  - Acute prerenal failure [None]
  - Hyperlipidaemia [None]
  - Hypercapnia [None]
  - Blood triglycerides increased [None]
  - Drug interaction [None]
  - Blood cholesterol increased [None]
  - Metabolic syndrome [None]
  - Blood electrolytes abnormal [None]
  - Ketonuria [None]
  - Mania [None]
  - Treatment noncompliance [None]
  - Acidosis [None]
  - Hypoxia [None]
